FAERS Safety Report 11895629 (Version 2)
Quarter: 2016Q1

REPORT INFORMATION
  Report Type: Spontaneous
  Country: US (occurrence: US)
  Receive Date: 20160107
  Receipt Date: 20160112
  Transmission Date: 20160526
  Serious: Yes (Other)
  Sender: FDA-Public Use
  Company Number: US-PFIZER INC-2016003100

PATIENT
  Age: 32 Year
  Sex: Female
  Weight: 119 kg

DRUGS (2)
  1. LYRICA [Suspect]
     Active Substance: PREGABALIN
     Indication: FIBROMYALGIA
     Dosage: 175 MG IN THE MORNING, 150 MG IN THE MIDDLE OF THE DAY, AND 175 MG AT NIGHT
     Route: 048
     Dates: start: 2005
  2. NORCO [Concomitant]
     Active Substance: ACETAMINOPHEN\HYDROCODONE BITARTRATE
     Indication: ARTHRITIS
     Dosage: UNK

REACTIONS (3)
  - Cerebral disorder [Unknown]
  - Pain [Unknown]
  - Sjogren^s syndrome [Not Recovered/Not Resolved]

NARRATIVE: CASE EVENT DATE: 2010
